FAERS Safety Report 18766130 (Version 1)
Quarter: 2021Q1

REPORT INFORMATION
  Report Type: Spontaneous
  Country: ES (occurrence: ES)
  Receive Date: 20210121
  Receipt Date: 20210121
  Transmission Date: 20210419
  Serious: Yes (Other)
  Sender: FDA-Public Use
  Company Number: ES-TEVA-2021-ES-1869584

PATIENT
  Age: 4 Decade
  Sex: Female

DRUGS (2)
  1. FLUCONAZOLE. [Suspect]
     Active Substance: FLUCONAZOLE
     Indication: ERYTHEMA ANNULARE
     Dosage: 100 MILLIGRAM DAILY;
     Route: 065
  2. AMITRIPTYLINE [Suspect]
     Active Substance: AMITRIPTYLINE
     Indication: MIGRAINE
     Dosage: ADMINISTERED FOR 5 YEARS
     Route: 065

REACTIONS (2)
  - Erythema annulare [Recovering/Resolving]
  - Drug ineffective [Unknown]
